FAERS Safety Report 7032547-6 (Version None)
Quarter: 2010Q4

REPORT INFORMATION
  Report Type: 
  Country: None (occurrence: None)
  Receive Date: 20101004
  Receipt Date: 20100919
  Transmission Date: 20110411
  Serious: Yes (Other)
  Sender: FDA-Public Use
  Company Number: GB-DEXPHARM-20101503

PATIENT
  Age: 78 Year
  Sex: Female

DRUGS (5)
  1. OMEPRAZOLE [Suspect]
     Dosage: DOSE: 20 MG MILLIGRAM(S), SEP. DOSAGES/INTERVAL: 1 IN 1 DAY
  2. ATENOLOL [Concomitant]
  3. ISOSORBIDE MONONITRATE [Concomitant]
  4. PREDNISOLONE [Concomitant]
  5. SIMVASTATIN [Concomitant]

REACTIONS (1)
  - SYSTEMIC LUPUS ERYTHEMATOSUS [None]
